FAERS Safety Report 5177642-1 (Version None)
Quarter: 2006Q4

REPORT INFORMATION
  Report Type: 
  Country: None (occurrence: None)
  Receive Date: 20061218
  Receipt Date: 20060724
  Transmission Date: 20070319
  Serious: No
  Sender: FDA-Public Use
  Company Number: US-AMGEN-KDL187573

PATIENT
  Sex: Female

DRUGS (3)
  1. ENBREL [Suspect]
     Indication: RHEUMATOID ARTHRITIS
     Route: 058
     Dates: start: 20060609
  2. PLAQUENIL [Concomitant]
     Dates: start: 20060518
  3. ARAVA [Concomitant]
     Dates: start: 20060118

REACTIONS (1)
  - NASOPHARYNGITIS [None]
